FAERS Safety Report 16573522 (Version 1)
Quarter: 2019Q3

REPORT INFORMATION
  Report Type: Spontaneous
  Country: GB (occurrence: GB)
  Receive Date: 20190715
  Receipt Date: 20190715
  Transmission Date: 20191004
  Serious: Yes (Other)
  Sender: FDA-Public Use
  Company Number: GB-MYLANLABS-2019M1065112

PATIENT
  Age: 71 Year
  Sex: Female

DRUGS (17)
  1. APROVEL [Suspect]
     Active Substance: IRBESARTAN
     Indication: PRODUCT USED FOR UNKNOWN INDICATION
     Route: 065
  2. ZANIDIP [Suspect]
     Active Substance: LERCANIDIPINE HYDROCHLORIDE
     Indication: PRODUCT USED FOR UNKNOWN INDICATION
     Route: 065
  3. LANSOPRAZOLE. [Concomitant]
     Active Substance: LANSOPRAZOLE
     Indication: PRODUCT USED FOR UNKNOWN INDICATION
     Route: 065
  4. DIOVAN [Suspect]
     Active Substance: VALSARTAN
     Indication: HYPERTENSION
     Dosage: 80 MG, QD
     Route: 048
     Dates: start: 200804, end: 201102
  5. VALSARTAN JUBILANT [Suspect]
     Active Substance: VALSARTAN
     Indication: PRODUCT USED FOR UNKNOWN INDICATION
     Route: 065
     Dates: start: 20140609
  6. GAVISCON ADVANCE                   /01340901/ [Concomitant]
     Indication: REFLUX GASTRITIS
     Dosage: AFTERNOON/EVENING
     Route: 065
  7. RAMIPRIL. [Suspect]
     Active Substance: RAMIPRIL
     Indication: PRODUCT USED FOR UNKNOWN INDICATION
     Dosage: 5 MG, UNK
     Route: 065
     Dates: start: 20170106
  8. AMLODIPINE [Suspect]
     Active Substance: AMLODIPINE BESYLATE
     Indication: PRODUCT USED FOR UNKNOWN INDICATION
     Dosage: 5 MG, UNK
     Route: 065
  9. SANDOSTATIN [Suspect]
     Active Substance: OCTREOTIDE ACETATE
     Indication: PRODUCT USED FOR UNKNOWN INDICATION
     Dosage: UNK
     Route: 065
     Dates: start: 201611
  10. VALSARTAN. [Suspect]
     Active Substance: VALSARTAN
     Indication: PRODUCT USED FOR UNKNOWN INDICATION
     Dosage: 50 MG, UNK
     Route: 065
     Dates: start: 20140615
  11. DIOVAN [Suspect]
     Active Substance: VALSARTAN
     Dosage: 40 MILLIGRAM
     Route: 048
     Dates: start: 2000
  12. MULTIVITAMINS                      /00116001/ [Concomitant]
     Active Substance: VITAMINS
     Indication: FOOD ALLERGY
     Route: 065
  13. OMEPRAZOLE. [Concomitant]
     Active Substance: OMEPRAZOLE
     Indication: ABDOMINAL DISCOMFORT
     Dosage: IN MORNING
     Route: 065
  14. PHYSIOTENS [Suspect]
     Active Substance: MOXONIDINE
     Indication: PRODUCT USED FOR UNKNOWN INDICATION
     Dosage: 300 MG, UNK
     Route: 065
  15. DIOVAN [Suspect]
     Active Substance: VALSARTAN
     Dosage: 80 MILLIGRAM
     Route: 048
     Dates: start: 20161126
  16. VALSARTAN TEVA [Suspect]
     Active Substance: VALSARTAN
     Indication: PRODUCT USED FOR UNKNOWN INDICATION
     Dosage: UNK
     Route: 065
  17. DIOVAN [Suspect]
     Active Substance: VALSARTAN
     Dosage: UNK
     Route: 048
     Dates: start: 2017

REACTIONS (22)
  - Inflammation [Unknown]
  - Haemorrhoids [Unknown]
  - Heart sounds abnormal [Unknown]
  - Dyspepsia [Unknown]
  - Sinus disorder [Unknown]
  - Helicobacter infection [Unknown]
  - Abdominal pain [Unknown]
  - Pain [Unknown]
  - Erythema [Unknown]
  - Nervousness [Unknown]
  - Neuralgia [Unknown]
  - Diarrhoea [Unknown]
  - Pruritus [Unknown]
  - Sleep disorder [Unknown]
  - Nausea [Unknown]
  - Palpitations [Unknown]
  - Musculoskeletal chest pain [Unknown]
  - Arthralgia [Unknown]
  - Product use in unapproved indication [Unknown]
  - Chest pain [Unknown]
  - Medication error [Unknown]
  - Headache [Unknown]

NARRATIVE: CASE EVENT DATE: 2000
